FAERS Safety Report 8495104 (Version 3)
Quarter: 2013Q1

REPORT INFORMATION
  Report Type: Report from Study
  Country: UY (occurrence: US)
  Receive Date: 20120405
  Receipt Date: 20130304
  Transmission Date: 20140127
  Serious: Yes (Congenital Anomaly, Other)
  Sender: FDA-Public Use
  Company Number: US-TEVA-2011003259

PATIENT
  Age: 0 Year
  Sex: Female

DRUGS (6)
  1. NUVIGIL [Suspect]
     Indication: NARCOLEPSY
     Route: 065
  2. FLUOXETINE HYDROCHLORIDE [Concomitant]
     Indication: DEPRESSION
     Dosage: 20 MILLIGRAM DAILY;
     Dates: start: 20110615
  3. METHYLPHENIDATE HYDROCHLORIDE [Concomitant]
     Indication: NARCOLEPSY
     Dosage: LAST DOSE AT 25 WEEKS GESTATION
     Dates: start: 2011
  4. PRISTIQ [Concomitant]
     Indication: DEPRESSION
     Dates: start: 2010, end: 20110605
  5. PRISTIQ [Concomitant]
     Indication: NARCOLEPSY
  6. OBETROL [Concomitant]
     Dosage: 1ST DOSE AT 25 WEEKS GESTATION

REACTIONS (4)
  - Foetal distress syndrome [Recovered/Resolved]
  - Gastrooesophageal reflux disease [Recovering/Resolving]
  - Strabismus [Recovered/Resolved]
  - Live birth [Unknown]
